FAERS Safety Report 9786572 (Version 1)
Quarter: 2013Q4

REPORT INFORMATION
  Report Type: Report from Study
  Country: FR (occurrence: FR)
  Receive Date: 20131227
  Receipt Date: 20131227
  Transmission Date: 20140711
  Serious: Yes (Other)
  Sender: FDA-Public Use
  Company Number: FR-UCBSA-106555

PATIENT
  Age: 67 Year
  Sex: Female

DRUGS (5)
  1. CIMZIA [Suspect]
     Indication: RHEUMATOID ARTHRITIS
     Dosage: UNKNOWN DOSE
     Route: 058
  2. OMEPRAZOLE [Concomitant]
     Indication: HIATUS HERNIA
     Route: 048
     Dates: start: 201101
  3. LEVOTHYROX [Concomitant]
     Indication: HYPOTHYROIDISM
     Route: 048
     Dates: start: 2004
  4. FENOFIBRATE [Concomitant]
     Indication: HYPERCHOLESTEROLAEMIA
     Route: 048
     Dates: start: 2004
  5. METHOTREXATE [Concomitant]
     Indication: RHEUMATOID ARTHRITIS
     Route: 048
     Dates: start: 201207

REACTIONS (1)
  - Erysipelas [Recovered/Resolved]
